FAERS Safety Report 9728183 (Version 1)
Quarter: 2013Q4

REPORT INFORMATION
  Report Type: Spontaneous
  Country: US (occurrence: US)
  Receive Date: 20131204
  Receipt Date: 20131204
  Transmission Date: 20140711
  Serious: Yes (Other)
  Sender: FDA-Public Use
  Company Number: US-ROCHE-1310127

PATIENT
  Age: 65 Year
  Sex: Female

DRUGS (3)
  1. PEG-INTERFERON ALFA 2A [Suspect]
     Indication: HEPATITIS C
     Route: 065
     Dates: start: 201206
  2. RIBAVIRIN [Suspect]
     Indication: HEPATITIS C
     Route: 065
     Dates: start: 201206
  3. TELAPREVIR [Concomitant]
     Route: 065
     Dates: start: 201206

REACTIONS (3)
  - Cardiomyopathy [Unknown]
  - Anaemia [Unknown]
  - Neutropenia [Unknown]
